FAERS Safety Report 8906235 (Version 2)
Quarter: 2012Q4

REPORT INFORMATION
  Report Type: Spontaneous
  Country: US (occurrence: None)
  Receive Date: 20121107
  Receipt Date: 20121217
  Transmission Date: 20130627
  Serious: Yes (Death, Hospitalization)
  Sender: FDA-Public Use
  Company Number: US-JNJFOC-20121013636

PATIENT
  Age: 62 Year
  Sex: Male
  Weight: 63.5 kg

DRUGS (4)
  1. DECITABINE [Suspect]
     Indication: ACUTE MYELOID LEUKAEMIA
     Route: 042
     Dates: start: 20120430
  2. DECITABINE [Suspect]
     Indication: ACUTE MYELOID LEUKAEMIA
     Route: 042
     Dates: start: 20120912, end: 20120917
  3. BORTEZOMIB [Suspect]
     Route: 058
     Dates: start: 20120430
  4. BORTEZOMIB [Suspect]
     Route: 058
     Dates: start: 20120912, end: 20120912

REACTIONS (5)
  - Fall [None]
  - Pancytopenia [None]
  - Back pain [None]
  - Chest pain [None]
  - Cerebrovascular accident [None]
